FAERS Safety Report 9510512 (Version 1)
Quarter: 2013Q3

REPORT INFORMATION
  Report Type: Spontaneous
  Country: US (occurrence: US)
  Receive Date: 20130909
  Receipt Date: 20130909
  Transmission Date: 20140515
  Serious: Yes (Hospitalization, Other)
  Sender: FDA-Public Use
  Company Number: US-B.I. PHARMACEUTICALS,INC./RIDGEFIELD-2013-BI-27420GD

PATIENT
  Age: 47 Year
  Sex: Male

DRUGS (7)
  1. PRAMIPEXOLE [Suspect]
     Indication: PARKINSON^S DISEASE
     Dosage: ABOVE 4.5 MG
  2. CARBIDOPA-LEVODOPA [Suspect]
     Indication: PARKINSON^S DISEASE
     Dosage: LEVODOPA-EQUIVALENT DOSE: 1600 MG
  3. CARBIDOPA-LEVODOPA [Suspect]
     Dosage: LEVODOPA-EQUIVALENT DOSE: 1525 MG (AFTER ELECTRODE PLACEMENT)
  4. SELEGILINE [Suspect]
     Indication: PARKINSON^S DISEASE
  5. CLONAZEPAM [Suspect]
     Indication: SLEEP DISORDER
  6. QUETIAPINE [Suspect]
     Indication: ABNORMAL DREAMS
     Dosage: 25 MG
  7. LORAZEPAM [Suspect]
     Route: 030

REACTIONS (16)
  - Psychotic disorder [Recovered/Resolved]
  - Impulsive behaviour [Unknown]
  - Deja vu [Unknown]
  - Fear [Unknown]
  - Communication disorder [Unknown]
  - Logorrhoea [Unknown]
  - Agitation [Unknown]
  - Delusion [Recovered/Resolved]
  - Delusion of grandeur [Recovered/Resolved]
  - Hallucination, visual [Recovered/Resolved]
  - Pathological gambling [Unknown]
  - Drug ineffective [Unknown]
  - Somnolence [Unknown]
  - Dyskinesia [Recovered/Resolved]
  - Tremor [Recovered/Resolved]
  - Sexually inappropriate behaviour [Unknown]
